FAERS Safety Report 9303261 (Version 1)
Quarter: 2013Q2

REPORT INFORMATION
  Report Type: Spontaneous
  Country: US (occurrence: US)
  Receive Date: 20130522
  Receipt Date: 20130522
  Transmission Date: 20140414
  Serious: No
  Sender: FDA-Public Use
  Company Number: US-PFIZER INC-2013155841

PATIENT
  Sex: Female
  Weight: 49.89 kg

DRUGS (4)
  1. NEURONTIN [Suspect]
     Indication: NEURALGIA
     Dosage: 100 MG, 1X/DAY
  2. NEURONTIN [Suspect]
     Dosage: 300 MG, 1X/DAY
  3. NEURONTIN [Suspect]
     Dosage: 1800 MG, 1X/DAY
  4. NEURONTIN [Suspect]
     Dosage: 2600 MG, 1X/DAY

REACTIONS (3)
  - Drug ineffective [Unknown]
  - Weight increased [Unknown]
  - Intentional drug misuse [Unknown]
